FAERS Safety Report 6880753-3 (Version None)
Quarter: 2010Q3

REPORT INFORMATION
  Report Type: 
  Country: None (occurrence: None)
  Receive Date: 20100728
  Receipt Date: 20100719
  Transmission Date: 20110219
  Serious: Yes (Hospitalization)
  Sender: FDA-Public Use
  Company Number: US-ALEXION-A201000801

PATIENT
  Sex: Female

DRUGS (1)
  1. SOLIRIS [Suspect]
     Indication: PAROXYSMAL NOCTURNAL HAEMOGLOBINURIA
     Dosage: UNK
     Route: 042
     Dates: end: 20100101

REACTIONS (6)
  - ASTHMA [None]
  - DYSPNOEA [None]
  - FATIGUE [None]
  - PNEUMONIA [None]
  - STAPHYLOCOCCAL INFECTION [None]
  - TRANSFUSION [None]
